FAERS Safety Report 19690181 (Version 1)
Quarter: 2021Q3

REPORT INFORMATION
  Report Type: Spontaneous
  Country: CA (occurrence: CA)
  Receive Date: 20210812
  Receipt Date: 20210812
  Transmission Date: 20211014
  Serious: Yes (Other)
  Sender: FDA-Public Use
  Company Number: CA-CELLTRION INC.-2021CA010581

PATIENT

DRUGS (6)
  1. INFLECTRA [Suspect]
     Active Substance: INFLIXIMAB-DYYB
     Indication: CROHN^S DISEASE
     Dosage: 400 MG, Q (EVERY) 0, 2, 6, THEN EVERY 8 WEEKS
     Route: 042
     Dates: start: 20210426
  2. INFLECTRA [Suspect]
     Active Substance: INFLIXIMAB-DYYB
     Dosage: UNK, EVERY 4 WEEKS
     Route: 042
  3. INFLECTRA [Suspect]
     Active Substance: INFLIXIMAB-DYYB
     Dosage: 400 MG, Q (EVERY) 0, 2, 6, THEN EVERY 8 WEEKS
     Route: 042
     Dates: start: 20210727
  4. INFLECTRA [Suspect]
     Active Substance: INFLIXIMAB-DYYB
     Dosage: 400 MG, Q (EVERY) 0, 2, 6, THEN EVERY 8 WEEKS
     Route: 042
     Dates: start: 20210607
  5. IMURAN [Concomitant]
     Active Substance: AZATHIOPRINE
     Dosage: 4 DF, DAILY
  6. STELARA [Concomitant]
     Active Substance: USTEKINUMAB
     Dosage: 90 MG, EVERY 8 WEEKS
     Dates: start: 20181212

REACTIONS (6)
  - Inappropriate schedule of product administration [Unknown]
  - Drug level above therapeutic [Unknown]
  - Drug ineffective [Unknown]
  - Crohn^s disease [Unknown]
  - Nausea [Unknown]
  - Off label use [Unknown]

NARRATIVE: CASE EVENT DATE: 20210712
